FAERS Safety Report 24249336 (Version 1)
Quarter: 2024Q3

REPORT INFORMATION
  Report Type: Spontaneous
  Country: CN (occurrence: CN)
  Receive Date: 20240826
  Receipt Date: 20240826
  Transmission Date: 20241016
  Serious: Yes (Life-Threatening, Other)
  Sender: BAXTER
  Company Number: None

PATIENT
  Age: 52 Year
  Sex: Female
  Weight: 66 kg

DRUGS (15)
  1. CYCLOPHOSPHAMIDE [Suspect]
     Active Substance: CYCLOPHOSPHAMIDE
     Indication: Chemotherapy
     Dosage: 1.2 G, ONE TIME IN ONE DAY, DILUTED WITH 100 ML 0.9% SODIUM CHLORIDE, 1 CYCLE, D1
     Route: 041
     Dates: start: 20240725, end: 20240725
  2. CYCLOPHOSPHAMIDE [Suspect]
     Active Substance: CYCLOPHOSPHAMIDE
     Indication: B-cell lymphoma
  3. CYCLOPHOSPHAMIDE [Suspect]
     Active Substance: CYCLOPHOSPHAMIDE
     Indication: Lymphoma
  4. SODIUM CHLORIDE [Suspect]
     Active Substance: SODIUM CHLORIDE
     Indication: Medication dilution
     Dosage: 0.9% 100 ML, ONE TIME IN ONE DAY, USED TO DILUTE CYCLOPHOSPHAMIDE 1.2 G, D1
     Route: 041
     Dates: start: 20240725, end: 20240725
  5. SODIUM CHLORIDE [Suspect]
     Active Substance: SODIUM CHLORIDE
     Dosage: 0.9% 20 ML, ONE TIME IN ONE DAY, USED TO DILUTE VINCRISTINE SULFATE 2MG, D1
     Route: 041
     Dates: start: 20240725, end: 20240725
  6. DEXTROSE [Suspect]
     Active Substance: DEXTROSE\DEXTROSE MONOHYDRATE
     Indication: Medication dilution
     Dosage: 5% 100 ML, ONE TIME IN ONE DAY, USED TO DILUTE PIRARUBICIN HYDROCHLORIDE 50MG, D1
     Route: 041
     Dates: start: 20240725, end: 20240725
  7. PIRARUBICIN HYDROCHLORIDE [Suspect]
     Active Substance: PIRARUBICIN HYDROCHLORIDE
     Indication: Chemotherapy
     Dosage: 50 MG, ONE TIME IN ONE DAY, DILUTED WITH 5% GLUCOSE 100 ML, D1, 1 CYCLE
     Route: 041
     Dates: start: 20240725, end: 20240725
  8. PIRARUBICIN HYDROCHLORIDE [Suspect]
     Active Substance: PIRARUBICIN HYDROCHLORIDE
     Indication: B-cell lymphoma
  9. PIRARUBICIN HYDROCHLORIDE [Suspect]
     Active Substance: PIRARUBICIN HYDROCHLORIDE
     Indication: Lymphoma
  10. VINCRISTINE SULFATE [Suspect]
     Active Substance: VINCRISTINE SULFATE
     Indication: Chemotherapy
     Dosage: 2 MG, ONE TIME IN ONE DAY, DILUTED WITH 0.9% SODIUM CHLORIDE 20ML, D1, 1 CYCLE
     Route: 041
     Dates: start: 20240725, end: 20240725
  11. VINCRISTINE SULFATE [Suspect]
     Active Substance: VINCRISTINE SULFATE
     Indication: B-cell lymphoma
  12. VINCRISTINE SULFATE [Suspect]
     Active Substance: VINCRISTINE SULFATE
     Indication: Lymphoma
  13. PREDNISONE ACETATE [Suspect]
     Active Substance: PREDNISONE ACETATE
     Indication: B-cell lymphoma
     Dosage: 100 MG, ONE TIME IN ONE DAY, D1-5, 1 CYCLE
     Route: 048
     Dates: start: 20240725, end: 20240729
  14. PREDNISONE ACETATE [Suspect]
     Active Substance: PREDNISONE ACETATE
     Indication: Lymphoma
  15. PREDNISONE ACETATE [Suspect]
     Active Substance: PREDNISONE ACETATE
     Indication: Chemotherapy

REACTIONS (1)
  - Myelosuppression [Recovering/Resolving]

NARRATIVE: CASE EVENT DATE: 20240808
